FAERS Safety Report 4841934-3 (Version None)
Quarter: 2005Q4

REPORT INFORMATION
  Report Type: 
  Country: None (occurrence: None)
  Receive Date: 20051130
  Receipt Date: 20051006
  Transmission Date: 20060501
  Serious: No
  Sender: FDA-Public Use
  Company Number: US-GLAXOSMITHKLINE-A0577375A

PATIENT
  Age: 74 Year
  Sex: Male

DRUGS (5)
  1. WELLBUTRIN XL [Suspect]
     Indication: DEPRESSION
     Dosage: 300MG PER DAY
     Route: 048
     Dates: start: 20050701
  2. LIPITOR [Concomitant]
  3. UNSPECIFIED MEDICATION [Concomitant]
     Indication: PROSTATIC DISORDER
  4. SLEEPING PILL [Concomitant]
  5. PROTONIX [Concomitant]

REACTIONS (4)
  - BACK PAIN [None]
  - DIZZINESS [None]
  - INSOMNIA [None]
  - POLLAKIURIA [None]
